FAERS Safety Report 6138627-1 (Version None)
Quarter: 2009Q1

REPORT INFORMATION
  Report Type: 
  Country: None (occurrence: None)
  Receive Date: 20090327
  Receipt Date: 20090323
  Transmission Date: 20090719
  Serious: Yes (Other)
  Sender: FDA-Public Use
  Company Number: 2009JP001699

PATIENT
  Age: 60 Year
  Sex: Female

DRUGS (1)
  1. PROGRAF [Suspect]
     Indication: LIVER TRANSPLANT
     Dates: end: 20040101

REACTIONS (7)
  - ALANINE AMINOTRANSFERASE INCREASED [None]
  - BILIARY ANASTOMOSIS COMPLICATION [None]
  - CHOLANGITIS [None]
  - COMPLICATIONS OF TRANSPLANTED LIVER [None]
  - DISEASE PROGRESSION [None]
  - HEPATIC CIRRHOSIS [None]
  - HEPATIC FIBROSIS [None]
